FAERS Safety Report 24416262 (Version 1)
Quarter: 2024Q4

REPORT INFORMATION
  Report Type: Spontaneous
  Country: US (occurrence: None)
  Receive Date: 20241008
  Receipt Date: 20241008
  Transmission Date: 20250114
  Serious: Yes (Hospitalization)
  Sender: Public
  Company Number: None

PATIENT
  Age: 81 Year
  Sex: Male

DRUGS (1)
  1. TORSEMIDE [Suspect]
     Active Substance: TORSEMIDE
     Indication: Cardiac failure congestive
     Dosage: FREQUENCY : DAILY;?
     Route: 048

REACTIONS (9)
  - Hypotension [None]
  - Acute kidney injury [None]
  - Dyspnoea [None]
  - Asthenia [None]
  - Acute kidney injury [None]
  - Cardiac failure congestive [None]
  - Electrolyte imbalance [None]
  - Polyuria [None]
  - Blood potassium increased [None]

NARRATIVE: CASE EVENT DATE: 20240531
